FAERS Safety Report 6105078-5 (Version None)
Quarter: 2009Q1

REPORT INFORMATION
  Report Type: 
  Country: None (occurrence: None)
  Receive Date: 20090306
  Receipt Date: 20090227
  Transmission Date: 20090719
  Serious: Yes (Other)
  Sender: FDA-Public Use
  Company Number: FI-JNJFOC-20090206608

PATIENT
  Age: 11 Year
  Sex: Male

DRUGS (1)
  1. CONCERTA [Suspect]
     Indication: DISTURBANCE IN ATTENTION
     Route: 048

REACTIONS (2)
  - DELUSION [None]
  - TOURETTE'S DISORDER [None]
